FAERS Safety Report 17372356 (Version 2)
Quarter: 2022Q2

REPORT INFORMATION
  Report Type: Spontaneous
  Country: RS (occurrence: RS)
  Receive Date: 20200205
  Receipt Date: 20220406
  Transmission Date: 20220720
  Serious: Yes (Hospitalization, Other)
  Sender: FDA-Public Use
  Company Number: RS-SUN PHARMACEUTICAL INDUSTRIES LTD-2020R1-234996

PATIENT
  Age: 36 Year
  Sex: Female

DRUGS (2)
  1. DILTIAZEM [Suspect]
     Active Substance: DILTIAZEM
     Indication: Product used for unknown indication
     Dosage: 90 TABLETS OF 90 MG
     Route: 048
  2. METOPROLOL [Suspect]
     Active Substance: METOPROLOL
     Indication: Product used for unknown indication
     Dosage: 50 TABLETS, 100 MG
     Route: 065

REACTIONS (6)
  - Cardiogenic shock [Recovering/Resolving]
  - Distributive shock [Recovering/Resolving]
  - Suicidal behaviour [Unknown]
  - Toxicity to various agents [Unknown]
  - Metabolic acidosis [Recovering/Resolving]
  - Multiple organ dysfunction syndrome [Recovering/Resolving]
